FAERS Safety Report 19992360 (Version 3)
Quarter: 2023Q1

REPORT INFORMATION
  Report Type: Spontaneous
  Country: GB (occurrence: GB)
  Receive Date: 20211026
  Receipt Date: 20230220
  Transmission Date: 20230418
  Serious: Yes (Hospitalization, Disabling, Other)
  Sender: FDA-Public Use
  Company Number: GB-MHRA-EYC 00263070

PATIENT
  Age: 39 Year
  Sex: Female
  Weight: 120 kg

DRUGS (5)
  1. CIPROFLOXACIN [Suspect]
     Active Substance: CIPROFLOXACIN
     Indication: Ill-defined disorder
     Dosage: 750 MILLIGRAM, TWO TIMES A DAY (GIVEN IV INITIALLY FOR 5 DAYS.)
     Route: 048
     Dates: start: 20210913, end: 20211003
  2. CIPROFLOXACIN [Suspect]
     Active Substance: CIPROFLOXACIN
     Indication: Sepsis
  3. CLARITHROMYCIN [Concomitant]
     Active Substance: CLARITHROMYCIN
     Indication: Ill-defined disorder
     Dosage: UNK
     Route: 065
  4. CLARITHROMYCIN [Concomitant]
     Active Substance: CLARITHROMYCIN
     Dosage: UNK
     Route: 042
  5. WARFARIN SODIUM [Concomitant]
     Active Substance: WARFARIN SODIUM
     Indication: Ill-defined disorder
     Dosage: UNK
     Route: 065

REACTIONS (34)
  - Tendon rupture [Not Recovered/Not Resolved]
  - Arthralgia [Not Recovered/Not Resolved]
  - Fatigue [Not Recovered/Not Resolved]
  - Plantar fasciitis [Not Recovered/Not Resolved]
  - Tendon pain [Not Recovered/Not Resolved]
  - Pain in extremity [Unknown]
  - Muscular weakness [Unknown]
  - Pain [Unknown]
  - Asthenia [Unknown]
  - Myalgia [Unknown]
  - Muscle atrophy [Unknown]
  - Neuralgia [Unknown]
  - Neuropathy peripheral [Unknown]
  - Joint instability [Unknown]
  - Finger deformity [Unknown]
  - Symphysiolysis [Unknown]
  - Tendonitis [Unknown]
  - Muscle rupture [Unknown]
  - Burning sensation [Unknown]
  - Palpitations [Unknown]
  - Blood pressure fluctuation [Unknown]
  - Heart rate irregular [Unknown]
  - Pernicious anaemia [Unknown]
  - Gastric disorder [Unknown]
  - Insomnia [Unknown]
  - Depression [Unknown]
  - Dysaesthesia [Unknown]
  - Back pain [Unknown]
  - Joint swelling [Unknown]
  - Rash [Unknown]
  - Hair texture abnormal [Unknown]
  - Nail disorder [Unknown]
  - Dry mouth [Unknown]
  - Muscle spasms [Unknown]

NARRATIVE: CASE EVENT DATE: 20210913
